FAERS Safety Report 6482348-2 (Version None)
Quarter: 2009Q4

REPORT INFORMATION
  Report Type: 
  Country: None (occurrence: None)
  Receive Date: 20091208
  Receipt Date: 20090325
  Transmission Date: 20100525
  Serious: No
  Sender: FDA-Public Use
  Company Number: US-AMGEN-TCS340101

PATIENT
  Sex: Female

DRUGS (1)
  1. ENBREL [Suspect]
     Indication: RHEUMATOID ARTHRITIS
     Route: 058
     Dates: start: 20050330

REACTIONS (7)
  - ARTHRALGIA [None]
  - CARPAL TUNNEL SYNDROME [None]
  - FOOT OPERATION [None]
  - JOINT STIFFNESS [None]
  - JOINT SWELLING [None]
  - RASH [None]
  - TENDONITIS [None]
